FAERS Safety Report 4825797-8 (Version None)
Quarter: 2005Q4

REPORT INFORMATION
  Report Type: 
  Country: None (occurrence: None)
  Receive Date: 20051111
  Receipt Date: 20051101
  Transmission Date: 20060501
  Serious: Yes (Hospitalization)
  Sender: FDA-Public Use
  Company Number: NO-GLAXOSMITHKLINE-B0398931A

PATIENT
  Age: 58 Year
  Sex: Male
  Weight: 96.8 kg

DRUGS (2)
  1. DUTASTERIDE [Suspect]
     Indication: BENIGN PROSTATIC HYPERPLASIA
     Dosage: .5MG PER DAY
     Route: 048
     Dates: start: 20040702, end: 20050709
  2. TAMSULOSIN [Suspect]
     Dosage: .4MG PER DAY
     Route: 048
     Dates: start: 20040702, end: 20050709

REACTIONS (2)
  - BLADDER CANCER [None]
  - BLOOD CREATININE INCREASED [None]
